FAERS Safety Report 20923009 (Version 1)
Quarter: 2022Q2

REPORT INFORMATION
  Report Type: Spontaneous
  Country: US (occurrence: US)
  Receive Date: 20220607
  Receipt Date: 20220607
  Transmission Date: 20220720
  Serious: No
  Sender: FDA-Public Use
  Company Number: US-Indoco-000288

PATIENT

DRUGS (1)
  1. SUCCINYLCHOLINE CHLORIDE [Suspect]
     Active Substance: SUCCINYLCHOLINE CHLORIDE
     Indication: Product used for unknown indication
     Dosage: STRENGTH: 200MG/10ML

REACTIONS (1)
  - Hypersensitivity [Unknown]
